FAERS Safety Report 24876084 (Version 1)
Quarter: 2025Q1

REPORT INFORMATION
  Report Type: Spontaneous
  Country: MY (occurrence: MY)
  Receive Date: 20250123
  Receipt Date: 20250123
  Transmission Date: 20250409
  Serious: Yes (Other)
  Sender: AMGEN
  Company Number: MY-AMGEN-MYSSP2025010433

PATIENT
  Age: 50 Year
  Sex: Male

DRUGS (1)
  1. NEUPOGEN [Suspect]
     Active Substance: FILGRASTIM
     Indication: Product used for unknown indication
     Route: 058

REACTIONS (1)
  - Rash pruritic [Recovering/Resolving]
